FAERS Safety Report 6683965-7 (Version None)
Quarter: 2010Q2

REPORT INFORMATION
  Report Type: 
  Country: None (occurrence: None)
  Receive Date: 20100416
  Receipt Date: 20100402
  Transmission Date: 20101027
  Serious: Yes (Hospitalization)
  Sender: FDA-Public Use
  Company Number: US-ELI_LILLY_AND_COMPANY-US201004002321

PATIENT
  Age: 20 Year
  Sex: Female

DRUGS (8)
  1. FORTEO [Suspect]
     Indication: OSTEOGENESIS IMPERFECTA
     Dosage: 20 UG, DAILY (1/D)
     Dates: start: 20100101
  2. NEURONTIN [Concomitant]
  3. TOPAMAX [Concomitant]
  4. SYMBICORT [Concomitant]
  5. ALBUTEROL [Concomitant]
     Route: 055
  6. PREVACID [Concomitant]
  7. NASONEX [Concomitant]
  8. VITAMIN D [Concomitant]

REACTIONS (2)
  - CELLULITIS [None]
  - OFF LABEL USE [None]
